FAERS Safety Report 8469637-7 (Version None)
Quarter: 2012Q2

REPORT INFORMATION
  Report Type: 
  Country: None (occurrence: None)
  Receive Date: 20120626
  Receipt Date: 20120525
  Transmission Date: 20120825
  Serious: No
  Sender: FDA-Public Use
  Company Number: US-TEVA-340471USA

PATIENT
  Sex: Male
  Weight: 89.438 kg

DRUGS (1)
  1. QNASL [Suspect]
     Dosage: 320 MCG
     Dates: start: 20120522

REACTIONS (3)
  - DRUG INEFFECTIVE [None]
  - THROAT IRRITATION [None]
  - DIZZINESS [None]
